FAERS Safety Report 11751808 (Version 2)
Quarter: 2015Q4

REPORT INFORMATION
  Report Type: Spontaneous
  Country: US (occurrence: US)
  Receive Date: 20151118
  Receipt Date: 20151202
  Transmission Date: 20160304
  Serious: Yes (Other)
  Sender: FDA-Public Use
  Company Number: US-BAUSCH-BL-2015-026097

PATIENT
  Sex: Male
  Weight: 95.34 kg

DRUGS (5)
  1. XARELTO [Concomitant]
     Active Substance: RIVAROXABAN
     Indication: CARDIAC PACEMAKER INSERTION
     Route: 048
  2. LISINOPRIL. [Concomitant]
     Active Substance: LISINOPRIL
     Indication: HYPERTENSION
     Route: 048
  3. ATORVASTATIN [Concomitant]
     Active Substance: ATORVASTATIN
     Indication: BLOOD CHOLESTEROL INCREASED
     Route: 048
  4. OCTINOXATE AND MERADIMATE AND TITANIUM DIOXIDE [Suspect]
     Active Substance: MERADIMATE\OCTINOXATE\TITANIUM DIOXIDE
     Indication: DRY SKIN
     Dosage: ONCE OR TWICE DAILY (MORNING AND MID-DAY) AS NEEDED
     Route: 061
  5. METRONIDAZOLE. [Suspect]
     Active Substance: METRONIDAZOLE
     Indication: ROSACEA
     Dosage: EVERY MORNING ONCE DAILY
     Route: 061

REACTIONS (1)
  - Malignant melanoma [Recovered/Resolved]
